FAERS Safety Report 7364484-1 (Version None)
Quarter: 2011Q1

REPORT INFORMATION
  Report Type: 
  Country: None (occurrence: None)
  Receive Date: 20110321
  Receipt Date: 20110311
  Transmission Date: 20110831
  Serious: Yes (Death)
  Sender: FDA-Public Use
  Company Number: CU-CELGENEUS-040-20785-11031529

PATIENT
  Age: 80 Year
  Sex: Female

DRUGS (4)
  1. PREDNISONE [Suspect]
     Dosage: 20 MILLIGRAM
     Route: 065
  2. WHOLE BLOOD [Concomitant]
     Route: 051
     Dates: end: 20070401
  3. THALIDOMIDE [Suspect]
     Indication: MYELOFIBROSIS
     Dosage: 100 MILLIGRAM
     Route: 048
  4. PREDNISONE [Suspect]
     Indication: MYELOFIBROSIS
     Dosage: 30 MILLIGRAM
     Route: 065

REACTIONS (1)
  - SEPSIS [None]
